FAERS Safety Report 6466680-4 (Version None)
Quarter: 2009Q4

REPORT INFORMATION
  Report Type: 
  Country: None (occurrence: None)
  Receive Date: 20091201
  Receipt Date: 20091201
  Transmission Date: 20100525
  Serious: No
  Sender: FDA-Public Use
  Company Number: None

PATIENT
  Sex: Male
  Weight: 90.5 kg

DRUGS (6)
  1. SINGULAIR [Suspect]
     Indication: ASTHMA
     Dosage: 10 MG QDAY PO  7-10 DAYS
     Route: 048
  2. PROVENTAL [Concomitant]
  3. NASACORT AQ [Concomitant]
  4. CHANTIX [Concomitant]
  5. ADVAIR DISKUS 100/50 [Concomitant]
  6. FROVATRIPTAN [Concomitant]

REACTIONS (3)
  - ERYTHEMA [None]
  - HYPERSENSITIVITY [None]
  - PRURITUS [None]
